FAERS Safety Report 12484569 (Version 7)
Quarter: 2022Q1

REPORT INFORMATION
  Report Type: Report from Study
  Country: US (occurrence: US)
  Receive Date: 20160621
  Receipt Date: 20220128
  Transmission Date: 20220423
  Serious: Yes (Other)
  Sender: FDA-Public Use
  Company Number: US-JAZZ-JPI-P-025631

PATIENT
  Age: 35 Year
  Sex: Female
  Weight: 61 kg

DRUGS (7)
  1. XYREM [Suspect]
     Active Substance: SODIUM OXYBATE
     Indication: Narcolepsy
     Dosage: 2.25 GRAM, BID
     Route: 048
     Dates: start: 20100113, end: 201002
  2. XYREM [Suspect]
     Active Substance: SODIUM OXYBATE
     Dosage: DOSE ADJUSTMENTS
     Route: 048
     Dates: start: 201002, end: 201306
  3. XYREM [Suspect]
     Active Substance: SODIUM OXYBATE
     Dosage: 3.75 GRAM, BID
     Route: 048
     Dates: start: 201306
  4. ARMODAFINIL [Concomitant]
     Active Substance: ARMODAFINIL
     Indication: Product used for unknown indication
     Dosage: UNK
     Dates: start: 2010
  5. ESTRADIOL [Concomitant]
     Active Substance: ESTRADIOL
     Indication: Product used for unknown indication
     Dosage: 0.1 %, SINGLE
     Dates: start: 201202
  6. VITAMIN B12 [Concomitant]
     Active Substance: CYANOCOBALAMIN
     Indication: Postoperative care
     Dosage: UNK
  7. DIVIGEL [Concomitant]
     Active Substance: ESTRADIOL
     Indication: Narcolepsy
     Dosage: 5 MG, SINGLE

REACTIONS (7)
  - Ovarian cyst [Recovered/Resolved]
  - Ovarian remnant syndrome [Unknown]
  - Sciatica [Recovered/Resolved]
  - Muscle strain [Unknown]
  - Vertigo [Recovered/Resolved]
  - Insomnia [Unknown]
  - Ear infection [Recovered/Resolved]

NARRATIVE: CASE EVENT DATE: 20130104
